FAERS Safety Report 8326612 (Version 3)
Quarter: 2013Q4

REPORT INFORMATION
  Report Type: Report from Study
  Country: US (occurrence: US)
  Receive Date: 20120109
  Receipt Date: 20131218
  Transmission Date: 20140711
  Serious: Yes (Death)
  Sender: FDA-Public Use
  Company Number: US-ASTELLAS-2012US000084

PATIENT
  Sex: Female

DRUGS (16)
  1. ERLOTINIB TABLET [Suspect]
     Indication: LUNG NEOPLASM MALIGNANT
     Dosage: UNK
     Route: 065
     Dates: start: 2009, end: 2009
  2. ERLOTINIB TABLET [Suspect]
     Indication: BREAST CANCER
  3. AVASTIN [Suspect]
     Indication: LUNG NEOPLASM MALIGNANT
     Dosage: 678 MG, UID/QD
     Route: 065
     Dates: start: 20081218, end: 20081218
  4. AVASTIN [Suspect]
     Indication: BREAST CANCER
     Dosage: 678 MG, UID/QD
     Route: 065
     Dates: start: 20090108, end: 20090108
  5. AVASTIN [Suspect]
     Dosage: 719 MG, UID/QD
     Route: 065
     Dates: start: 20090219, end: 20090219
  6. AVASTIN [Suspect]
     Dosage: 729 MG, UID/QD
     Route: 065
     Dates: start: 20090312, end: 20090312
  7. AVASTIN [Suspect]
     Dosage: 729 MG, UID/QD
     Route: 065
     Dates: start: 20090402, end: 20090402
  8. AVASTIN [Suspect]
     Dosage: 738 MG, UID/QD
     Route: 065
     Dates: start: 20090423, end: 20090423
  9. AVASTIN [Suspect]
     Dosage: 743 MG, UID/QD
     Route: 065
     Dates: start: 20090522, end: 20090522
  10. PEMETREXED [Concomitant]
     Indication: PRODUCT USED FOR UNKNOWN INDICATION
     Dosage: 568 MG, UNKNOWN/D
     Route: 065
     Dates: start: 20081218
  11. NORMAL SALINE [Concomitant]
     Indication: PRODUCT USED FOR UNKNOWN INDICATION
     Dosage: 250 UNK, UNKNOWN/D
     Route: 065
     Dates: start: 20081218
  12. CARBOPLATIN [Concomitant]
     Indication: PRODUCT USED FOR UNKNOWN INDICATION
     Dosage: 372 MG, UNKNOWN/D
     Route: 065
     Dates: start: 20081218
  13. ALOXI [Concomitant]
     Indication: PRODUCT USED FOR UNKNOWN INDICATION
     Dosage: 0.25 UNK, UNKNOWN/D
     Route: 042
     Dates: start: 20081218
  14. VITAMIN B12                        /00056201/ [Concomitant]
     Indication: PRODUCT USED FOR UNKNOWN INDICATION
     Dosage: 1000 UNK, UNKNOWN/D
     Route: 030
     Dates: start: 20090219
  15. ALIMTA [Concomitant]
     Indication: PRODUCT USED FOR UNKNOWN INDICATION
     Dosage: 588 MG, UNKNOWN/D
     Route: 042
     Dates: start: 20090312
  16. DECADRON                           /00016001/ [Concomitant]
     Indication: PRODUCT USED FOR UNKNOWN INDICATION
     Dosage: 10 MG, UNKNOWN/D
     Route: 065
     Dates: start: 20081218

REACTIONS (5)
  - Off label use [Unknown]
  - Death [Fatal]
  - Dyspnoea [Unknown]
  - Decreased appetite [Unknown]
  - Fatigue [Unknown]
